FAERS Safety Report 8169156-1 (Version None)
Quarter: 2012Q1

REPORT INFORMATION
  Report Type: 
  Country: None (occurrence: None)
  Receive Date: 20120227
  Receipt Date: 20120216
  Transmission Date: 20120608
  Serious: Yes (Other)
  Sender: FDA-Public Use
  Company Number: US-VERTEX PHARMACEUTICALS INC.-AE-2012-002327

PATIENT
  Sex: Female
  Weight: 97.61 kg

DRUGS (5)
  1. INCIVEK [Suspect]
     Indication: HEPATITIS C
     Route: 048
     Dates: start: 20111116, end: 20120125
  2. PEGASYS [Concomitant]
     Indication: HEPATITIS C
     Route: 058
     Dates: start: 20111116, end: 20120118
  3. RIBASPHERE [Concomitant]
     Indication: HEPATITIS C
     Route: 048
     Dates: start: 20111116
  4. PEGASYS [Concomitant]
     Route: 058
     Dates: start: 20120215
  5. PEGASYS [Concomitant]
     Route: 058
     Dates: start: 20120125, end: 20120208

REACTIONS (6)
  - PARAESTHESIA [None]
  - ANAL PRURITUS [None]
  - HEPATIC ENZYME INCREASED [None]
  - ANAEMIA [None]
  - ANORECTAL DISCOMFORT [None]
  - RASH PRURITIC [None]
